FAERS Safety Report 18545649 (Version 1)
Quarter: 2020Q4

REPORT INFORMATION
  Report Type: Report from Study
  Country: AR (occurrence: AR)
  Receive Date: 20201125
  Receipt Date: 20201125
  Transmission Date: 20210114
  Serious: Yes (Hospitalization)
  Sender: FDA-Public Use
  Company Number: AR-WORLDWIDE CLINICAL TRIALS-2020-AR-000562

PATIENT
  Age: 54 Year
  Sex: Male
  Weight: 67 kg

DRUGS (19)
  1. DCC-2618 [Suspect]
     Active Substance: RIPRETINIB
     Indication: GASTROINTESTINAL STROMAL TUMOUR
     Dosage: 100 MILLIGRAM, QD
     Route: 048
     Dates: start: 20200922, end: 20201004
  2. VIT A, MG, BIOTIN, NICOTINIC ACID, FOLIC ACID, VIT B12, MN, CA, RIBOFL [Concomitant]
     Indication: VITAMIN B1 DEFICIENCY
  3. VALSARTAN. [Concomitant]
     Active Substance: VALSARTAN
     Indication: HYPERTENSION
     Dosage: 320 MILLIGRAM, QD
     Route: 048
     Dates: start: 20200901, end: 20200908
  4. TRAMADOL. [Concomitant]
     Active Substance: TRAMADOL
     Indication: PAIN
     Dosage: 25 MILLIGRAM, Q12H
     Route: 048
     Dates: start: 20200901, end: 20200909
  5. DIPHENYLHYDANTOIN [Concomitant]
     Active Substance: PHENYTOIN
     Dosage: 100 MILLIGRAM, Q6H
     Route: 042
     Dates: start: 20200909, end: 20200911
  6. AMLODIPINE [Concomitant]
     Active Substance: AMLODIPINE BESYLATE
     Indication: HYPERTENSION
     Dosage: 5 MILLIGRAM, QD
     Route: 048
     Dates: start: 20200902
  7. RANITIDINE. [Concomitant]
     Active Substance: RANITIDINE
     Indication: GASTRITIS
     Dosage: 50 MILLIGRAM, Q8H
     Route: 042
     Dates: start: 20200901, end: 20200908
  8. OMEPRAZOLE. [Concomitant]
     Active Substance: OMEPRAZOLE
     Indication: GASTRITIS
     Dosage: 40 MILLIGRAM, Q12H
     Route: 042
     Dates: start: 20200909
  9. AGAROL [PARAFFIN, LIQUID;SODIUM PICOSULFATE] [Concomitant]
     Indication: CONSTIPATION
     Dosage: 10 MILLILITER, QD
     Route: 048
     Dates: start: 20200901, end: 20200908
  10. METOCLOPRAMIDE. [Concomitant]
     Active Substance: METOCLOPRAMIDE
     Indication: NAUSEA
     Dosage: 10 MILLIGRAM, Q8H
     Route: 042
     Dates: start: 20200901, end: 20200916
  11. DIPHENYLHYDANTOIN [Concomitant]
     Active Substance: PHENYTOIN
     Dosage: 100 MILLIGRAM, Q12H
     Route: 048
     Dates: start: 20200917
  12. ENOXAPARIN SODIUM. [Concomitant]
     Active Substance: ENOXAPARIN SODIUM
     Indication: VENOUS THROMBOSIS
     Dosage: 40 MILLIGRAM, QD
     Route: 058
     Dates: start: 20200903, end: 20200915
  13. AMPICILLIN AND SULBACTAM [Concomitant]
     Active Substance: AMPICILLIN SODIUM\SULBACTAM SODIUM
     Indication: INFECTION PROPHYLAXIS
     Dosage: 1.5 GRAM, Q6H
     Route: 042
     Dates: start: 20200909, end: 20200916
  14. APROLAC [SOYA ISOFLAVONES] [Concomitant]
     Indication: HAEMORRHOIDS
     Dosage: 500 MILLIGRAM, Q8H
     Route: 048
     Dates: start: 20200914
  15. LABETALOL [Concomitant]
     Active Substance: LABETALOL\LABETALOL HYDROCHLORIDE
     Indication: HYPERTENSION
     Dosage: 10 MILLIGRAM, QD
     Route: 048
     Dates: start: 20200909, end: 20200911
  16. DIPHENYLHYDANTOIN [Concomitant]
     Active Substance: PHENYTOIN
     Indication: GENERALISED TONIC-CLONIC SEIZURE
     Dosage: 800 MILLIGRAM, ONCE
     Route: 042
     Dates: start: 20200909, end: 20200909
  17. AGAROL [PARAFFIN, LIQUID;SODIUM PICOSULFATE] [Concomitant]
     Dosage: 10 MILLILITER, Q8H
     Route: 048
     Dates: start: 20200909, end: 20200920
  18. DIPHENYLHYDANTOIN [Concomitant]
     Active Substance: PHENYTOIN
     Dosage: 100 MILLIGRAM, Q8H
     Route: 042
     Dates: start: 20200912, end: 20200916
  19. VIT A, MG, BIOTIN, NICOTINIC ACID, FOLIC ACID, VIT B12, MN, CA, RIBOFL [Concomitant]
     Indication: ENCEPHALOPATHY
     Dosage: 1 TABLET, QD
     Route: 048
     Dates: start: 20200909

REACTIONS (2)
  - Lower gastrointestinal haemorrhage [Unknown]
  - Confusional state [Recovered/Resolved]

NARRATIVE: CASE EVENT DATE: 20201003
